FAERS Safety Report 9111783 (Version 2)
Quarter: 2014Q1

REPORT INFORMATION
  Report Type: Spontaneous
  Country: US (occurrence: US)
  Receive Date: 20130219
  Receipt Date: 20140213
  Transmission Date: 20141002
  Serious: No
  Sender: FDA-Public Use
  Company Number: US-BRISTOL-MYERS SQUIBB COMPANY-17234196

PATIENT
  Age: 52 Year
  Sex: Female
  Weight: 86.17 kg

DRUGS (9)
  1. ORENCIA [Suspect]
     Indication: RHEUMATOID ARTHRITIS
     Dosage: STRENGTH: 125MG/ML PFS
     Route: 058
     Dates: start: 201107, end: 201207
  2. CALCIUM [Concomitant]
  3. CRANBERRY [Concomitant]
  4. GARLIC [Concomitant]
  5. LEVOTHYROXIN [Concomitant]
  6. MULTIVITAMIN [Concomitant]
  7. NABUMETONE [Concomitant]
  8. POTASSIUM [Concomitant]
  9. VITAMIN D [Concomitant]

REACTIONS (1)
  - Dermatitis allergic [Recovered/Resolved]
